FAERS Safety Report 5950762-7 (Version None)
Quarter: 2008Q4

REPORT INFORMATION
  Report Type: 
  Country: None (occurrence: None)
  Receive Date: 20081112
  Receipt Date: 20081104
  Transmission Date: 20090506
  Serious: Yes (Other)
  Sender: FDA-Public Use
  Company Number: JP-B.I. PHARMACEUTICALS,INC./RIDGEFIELD-2008-BP-16755NB

PATIENT
  Sex: Male
  Weight: 80 kg

DRUGS (6)
  1. SPIRIVA [Suspect]
     Indication: EMPHYSEMA
     Dosage: 18MCG
     Route: 055
     Dates: start: 20070315
  2. SEREVENT [Concomitant]
     Indication: EMPHYSEMA
     Dosage: 100MG
     Route: 055
     Dates: start: 20070315
  3. CLEANAL [Concomitant]
     Indication: EMPHYSEMA
     Dosage: 1200MG
     Route: 048
     Dates: start: 20070210, end: 20071227
  4. LANIRAPID [Concomitant]
     Indication: ATRIAL FIBRILLATION
     Dosage: .1MG
     Route: 048
     Dates: start: 20061211
  5. ASPIRIN [Concomitant]
     Indication: CEREBRAL INFARCTION
     Dosage: 100MG
     Route: 048
     Dates: start: 20061211
  6. WARFARIN SODIUM [Concomitant]
     Indication: CEREBRAL INFARCTION
     Dosage: 2MG
     Route: 048
     Dates: start: 20061214

REACTIONS (1)
  - CARDIAC FAILURE [None]
